FAERS Safety Report 8981807 (Version 2)
Quarter: 2013Q4

REPORT INFORMATION
  Report Type: Spontaneous
  Country: IT (occurrence: IT)
  Receive Date: 20121223
  Receipt Date: 20131205
  Transmission Date: 20140711
  Serious: Yes (Other)
  Sender: FDA-Public Use
  Company Number: PHHY2012IT111381

PATIENT
  Age: 68 Year
  Sex: Male

DRUGS (3)
  1. ZOMETA [Suspect]
     Indication: METASTASES TO BONE
     Dosage: 4 MG, MONTHLY
     Dates: start: 20071201, end: 20100401
  2. ZOMETA [Suspect]
     Dosage: 4 MG, MONTHLY
     Dates: start: 201103, end: 201105
  3. VIT D [Concomitant]

REACTIONS (1)
  - Osteonecrosis of jaw [Not Recovered/Not Resolved]
